FAERS Safety Report 6305707-7 (Version None)
Quarter: 2009Q3

REPORT INFORMATION
  Report Type: 
  Country: None (occurrence: None)
  Receive Date: 20090812
  Receipt Date: 20070522
  Transmission Date: 20100115
  Serious: Yes (Hospitalization, Other)
  Sender: FDA-Public Use
  Company Number: US-ASTRAZENECA-2006UW07039

PATIENT
  Age: 8078 Day
  Sex: Male
  Weight: 158.8 kg

DRUGS (14)
  1. SEROQUEL [Suspect]
     Indication: PSYCHOTIC DISORDER
     Dosage: 100-200 MG PO
     Dates: start: 19980201, end: 20040701
  2. SEROQUEL [Suspect]
     Indication: INSOMNIA
     Dosage: 100-200 MG PO
     Dates: start: 19980201, end: 20040701
  3. SEROQUEL [Suspect]
     Dosage: 100 MG IN THE MORNING AND 200 MG AT NIGHT
     Route: 048
     Dates: start: 20000203, end: 20070301
  4. SEROQUEL [Suspect]
     Dosage: 100 MG IN THE MORNING AND 200 MG AT NIGHT
     Route: 048
     Dates: start: 20000203, end: 20070301
  5. RISPERDAL [Suspect]
     Dates: start: 19970501, end: 19980101
  6. RISPERDAL [Suspect]
     Route: 048
     Dates: start: 20041101
  7. RISPERDAL [Suspect]
     Route: 048
     Dates: start: 20041101
  8. ABILIFY [Concomitant]
  9. GEODON [Concomitant]
  10. HALDOL [Concomitant]
     Dates: start: 20031101
  11. LAMICTAL [Concomitant]
     Dates: start: 20031101, end: 20040201
  12. DEPAKOTE [Concomitant]
     Dates: start: 20000203
  13. LICO3 [Concomitant]
     Dates: start: 20000203
  14. COLCHICINE [Concomitant]
     Dates: start: 20041122

REACTIONS (9)
  - ANAEMIA [None]
  - DIABETES MELLITUS [None]
  - DIABETES MELLITUS INADEQUATE CONTROL [None]
  - RENAL DISORDER [None]
  - RENAL FAILURE [None]
  - TESTIS CANCER [None]
  - TYPE 2 DIABETES MELLITUS [None]
  - WEIGHT INCREASED [None]
  - WHITE BLOOD CELL COUNT DECREASED [None]
